FAERS Safety Report 14222747 (Version 1)
Quarter: 2017Q4

REPORT INFORMATION
  Report Type: Spontaneous
  Country: US (occurrence: US)
  Receive Date: 20171124
  Receipt Date: 20171124
  Transmission Date: 20180321
  Serious: No
  Sender: FDA-Public Use
  Company Number: US-JNJFOC-20171035615

PATIENT
  Sex: Female
  Weight: 99.79 kg

DRUGS (1)
  1. ELMIRON [Suspect]
     Active Substance: PENTOSAN POLYSULFATE SODIUM
     Indication: INFECTION PROPHYLAXIS
     Route: 065

REACTIONS (4)
  - Product use in unapproved indication [Unknown]
  - White blood cell count increased [Not Recovered/Not Resolved]
  - Product use issue [Unknown]
  - Off label use [Unknown]
